FAERS Safety Report 6989591-4 (Version None)
Quarter: 2010Q3

REPORT INFORMATION
  Report Type: 
  Country: None (occurrence: None)
  Receive Date: 20100916
  Receipt Date: 20100113
  Transmission Date: 20110219
  Serious: Yes (Hospitalization, Disabling, Other)
  Sender: FDA-Public Use
  Company Number: ZA-PFIZER INC-2010004663

PATIENT
  Sex: Female

DRUGS (6)
  1. LYRICA [Suspect]
     Indication: PAIN IN EXTREMITY
     Dosage: 75 MG, 2-3 TIMES DAILY
     Route: 048
  2. LEVOTHYROXINE SODIUM [Concomitant]
     Indication: HYPOTHYROIDISM
     Dosage: UNK
  3. PERINDOPRIL [Concomitant]
     Indication: HYPERTENSION
     Dosage: UNK
  4. PAXIL [Concomitant]
     Dosage: UNK
  5. TREPILINE [Concomitant]
     Dosage: UNK
  6. DEGRANOL [Concomitant]
     Dosage: UNK

REACTIONS (3)
  - ABASIA [None]
  - MULTIPLE SCLEROSIS [None]
  - SYNCOPE [None]
